FAERS Safety Report 11885425 (Version 1)
Quarter: 2015Q4

REPORT INFORMATION
  Report Type: Spontaneous
  Country: US (occurrence: None)
  Receive Date: 20151231
  Receipt Date: 20151231
  Transmission Date: 20160305
  Serious: Yes (Other)
  Sender: FDA-Public Use
  Company Number: None

PATIENT
  Age: 32 Year
  Sex: Female
  Weight: 81.65 kg

DRUGS (1)
  1. ZOLPIDEM TARTRATE 10 MG PRESCRIPTION [Suspect]
     Active Substance: ZOLPIDEM TARTRATE
     Indication: INSOMNIA
     Route: 048

REACTIONS (7)
  - Road traffic accident [None]
  - Loss of consciousness [None]
  - Amnesia [None]
  - Somnambulism [None]
  - Legal problem [None]
  - Confusional state [None]
  - Deja vu [None]

NARRATIVE: CASE EVENT DATE: 20151130
